FAERS Safety Report 23927660 (Version 2)
Quarter: 2024Q2

REPORT INFORMATION
  Report Type: Spontaneous
  Country: US (occurrence: US)
  Receive Date: 20240531
  Receipt Date: 20240603
  Transmission Date: 20240716
  Serious: Yes (Other)
  Sender: FDA-Public Use
  Company Number: US-MALLINCKRODT-MNK202403527

PATIENT
  Age: 13 Month
  Sex: Female

DRUGS (2)
  1. NITRIC OXIDE [Suspect]
     Active Substance: NITRIC OXIDE
     Indication: Acute respiratory failure
     Dosage: UNKNOWN
     Route: 055
  2. EPOPROSTENOL [Concomitant]
     Active Substance: EPOPROSTENOL
     Dosage: UNKNOWN

REACTIONS (4)
  - Disseminated intravascular coagulation [Recovered/Resolved]
  - Cerebral infarction [Recovering/Resolving]
  - Multiple organ dysfunction syndrome [Unknown]
  - Product use issue [Unknown]
